FAERS Safety Report 21049665 (Version 11)
Quarter: 2022Q4

REPORT INFORMATION
  Report Type: Report from Study
  Country: CA (occurrence: CA)
  Receive Date: 20220706
  Receipt Date: 20221114
  Transmission Date: 20230113
  Serious: Yes (Hospitalization, Other)
  Sender: FDA-Public Use
  Company Number: CA-BRISTOL-MYERS SQUIBB COMPANY-BMS-2022-021354

PATIENT
  Age: 70 Year
  Sex: Male
  Weight: 66.6 kg

DRUGS (2)
  1. OPDIVO [Suspect]
     Active Substance: NIVOLUMAB
     Indication: Oesophageal carcinoma
     Dosage: BATCH NUMBER: ACD3197/1901590, ACD3324. EXPIRY DATE:31-AUG-2023.?BATCH NUMBER: 1913768/1863291,  EXP
     Route: 042
     Dates: start: 20220113
  2. PANTOPRAZOLE SODIUM [Concomitant]
     Active Substance: PANTOPRAZOLE SODIUM
     Indication: Product used for unknown indication
     Dosage: UNK
     Route: 065

REACTIONS (60)
  - Headache [Not Recovered/Not Resolved]
  - Inguinal hernia [Unknown]
  - Gait disturbance [Unknown]
  - Chest discomfort [Recovered/Resolved]
  - Procedural pain [Unknown]
  - Hypoacusis [Not Recovered/Not Resolved]
  - Rhinorrhoea [Not Recovered/Not Resolved]
  - Contusion [Not Recovered/Not Resolved]
  - Confusional state [Not Recovered/Not Resolved]
  - Cataract [Not Recovered/Not Resolved]
  - Hyperhidrosis [Not Recovered/Not Resolved]
  - Choking [Not Recovered/Not Resolved]
  - Melaena [Unknown]
  - Rash [Not Recovered/Not Resolved]
  - Cough [Not Recovered/Not Resolved]
  - Malaise [Not Recovered/Not Resolved]
  - Paraesthesia [Not Recovered/Not Resolved]
  - Dyspnoea exertional [Not Recovered/Not Resolved]
  - Muscle spasms [Not Recovered/Not Resolved]
  - Weight decreased [Unknown]
  - Faeces discoloured [Recovered/Resolved]
  - Vomiting [Not Recovered/Not Resolved]
  - Nausea [Unknown]
  - Dry eye [Unknown]
  - Acne [Unknown]
  - Pruritus [Recovering/Resolving]
  - Alopecia [Unknown]
  - Back pain [Unknown]
  - Myalgia [Unknown]
  - Asthenia [Unknown]
  - Chest pain [Unknown]
  - Dyspepsia [Unknown]
  - Constipation [Unknown]
  - Chromaturia [Unknown]
  - Decreased appetite [Unknown]
  - Tremor [Unknown]
  - Somnolence [Unknown]
  - Blood thyroid stimulating hormone abnormal [Unknown]
  - Memory impairment [Unknown]
  - Sinusitis [Recovered/Resolved]
  - Visual impairment [Unknown]
  - Dry skin [Not Recovered/Not Resolved]
  - Dizziness [Unknown]
  - Irritability [Unknown]
  - Anger [Unknown]
  - Musculoskeletal stiffness [Unknown]
  - Influenza like illness [Unknown]
  - Weight increased [Unknown]
  - Skin plaque [Unknown]
  - Skin exfoliation [Unknown]
  - Abdominal pain lower [Recovering/Resolving]
  - Swelling [Unknown]
  - Blister [Unknown]
  - Scar [Unknown]
  - Diarrhoea [Unknown]
  - Frustration tolerance decreased [Unknown]
  - Musculoskeletal chest pain [Not Recovered/Not Resolved]
  - Feeling abnormal [Not Recovered/Not Resolved]
  - Tinnitus [Not Recovered/Not Resolved]
  - Hypoaesthesia [Not Recovered/Not Resolved]

NARRATIVE: CASE EVENT DATE: 20220101
